FAERS Safety Report 8812340 (Version 3)
Quarter: 2013Q3

REPORT INFORMATION
  Report Type: Report from Study
  Country: JP (occurrence: JP)
  Receive Date: 20120927
  Receipt Date: 20130826
  Transmission Date: 20140515
  Serious: Yes (Other)
  Sender: FDA-Public Use
  Company Number: JP-VERTEX PHARMACEUTICAL INC.-2012-021786

PATIENT
  Age: 48 Year
  Sex: Female

DRUGS (11)
  1. VX-950 (TELAPREVIR) [Suspect]
     Indication: CHRONIC HEPATITIS C
     Dosage: 1500 MG, QD
     Route: 048
     Dates: start: 20120725, end: 20121016
  2. RIBAVIRIN [Concomitant]
     Dosage: 400 MG, QD
     Route: 048
     Dates: start: 20120725, end: 20120828
  3. RIBAVIRIN [Concomitant]
     Dosage: 200 MG, QD
     Route: 048
     Dates: start: 20120829, end: 20120904
  4. RIBAVIRIN [Concomitant]
     Dosage: 500 MG, QD
     Route: 048
     Dates: start: 20120905, end: 20120918
  5. RIBAVIRIN [Concomitant]
     Dosage: 400 MG, QD
     Route: 048
     Dates: start: 20120919, end: 20121016
  6. RIBAVIRIN [Concomitant]
     Dosage: 200 MG, QD
     Route: 048
     Dates: start: 20121017, end: 20121023
  7. RIBAVIRIN [Concomitant]
     Dosage: 400 MG, QD
     Route: 048
     Dates: start: 20121024, end: 20121204
  8. RIBAVIRIN [Concomitant]
     Dosage: 500 MG, QD
     Route: 048
     Dates: start: 20121205, end: 20130109
  9. PEGINTERFERON ALFA-2B [Concomitant]
     Dosage: 1.5 ?G/KG, QW
     Route: 058
     Dates: start: 20120725, end: 20120731
  10. PEGINTERFERON ALFA-2B [Concomitant]
     Dosage: 1.2 ?G/KG, QW
     Route: 058
     Dates: start: 20120801, end: 20130104
  11. TALION [Concomitant]
     Dosage: 20 MG, QD
     Route: 048
     Dates: end: 20121128

REACTIONS (1)
  - Neutrophil count decreased [Recovered/Resolved]
